FAERS Safety Report 13569671 (Version 1)
Quarter: 2017Q2

REPORT INFORMATION
  Report Type: Spontaneous
  Country: TR (occurrence: TR)
  Receive Date: 20170522
  Receipt Date: 20170522
  Transmission Date: 20170830
  Serious: Yes (Hospitalization)
  Sender: FDA-Public Use
  Company Number: TR-INGENUS PHARMACEUTICALS NJ, LLC-ING201705-000264

PATIENT
  Age: 41 Year
  Sex: Male

DRUGS (2)
  1. WARFARIN [Suspect]
     Active Substance: WARFARIN
  2. CARISOPRODOL AND ASPIRIN [Suspect]
     Active Substance: ASPIRIN\CARISOPRODOL
     Indication: ANTIPLATELET THERAPY

REACTIONS (3)
  - Haematoma [Recovered/Resolved]
  - Retroperitoneal haematoma [Recovered/Resolved]
  - Femoral nerve palsy [Recovered/Resolved]
